FAERS Safety Report 9538315 (Version 1)
Quarter: 2013Q3

REPORT INFORMATION
  Report Type: Report from Study
  Country: CA (occurrence: CA)
  Receive Date: 20130920
  Receipt Date: 20130920
  Transmission Date: 20140515
  Serious: Yes (Hospitalization)
  Sender: FDA-Public Use
  Company Number: CA-ROCHE-1277397

PATIENT
  Age: 46 Year
  Sex: Female
  Weight: 52.6 kg

DRUGS (7)
  1. RITUXAN [Suspect]
     Indication: GRANULOMA
     Dosage: FREQUENCY: DAY 1, 15
     Route: 042
     Dates: start: 201101
  2. DIPHENHYDRAMINE HYDROCHLORIDE [Concomitant]
     Indication: PREMEDICATION
     Route: 048
     Dates: start: 20130906
  3. ACETAMINOPHEN [Concomitant]
     Indication: PREMEDICATION
     Route: 048
     Dates: start: 20130906
  4. RAMIPRIL [Concomitant]
  5. METHYLPREDNISOLONE [Concomitant]
     Route: 042
     Dates: start: 20130906
  6. PREDNISONE [Concomitant]
  7. AZATHIOPRINE [Concomitant]

REACTIONS (2)
  - Haematuria [Unknown]
  - Blood pressure increased [Unknown]
